FAERS Safety Report 7934030-X (Version None)
Quarter: 2011Q4

REPORT INFORMATION
  Report Type: 
  Country: None (occurrence: None)
  Receive Date: 20111122
  Receipt Date: 20111107
  Transmission Date: 20120403
  Serious: Yes (Life-Threatening, Hospitalization)
  Sender: FDA-Public Use
  Company Number: DE-ROCHE-803509

PATIENT
  Sex: Male
  Weight: 75 kg

DRUGS (4)
  1. CARBAMAZEPINE [Concomitant]
  2. MABTHERA [Suspect]
     Indication: NON-HODGKIN'S LYMPHOMA
     Route: 042
     Dates: start: 20110901, end: 20110901
  3. PREGABALIN [Suspect]
     Indication: PRODUCT USED FOR UNKNOWN INDICATION
     Route: 065
  4. BENDAMUSTINE [Suspect]
     Indication: NON-HODGKIN'S LYMPHOMA
     Route: 042
     Dates: start: 20110902, end: 20110903

REACTIONS (7)
  - PLATELET COUNT DECREASED [None]
  - NECROSIS [None]
  - VIRAL INFECTION [None]
  - VULVAL ULCERATION [None]
  - NASAL NECROSIS [None]
  - INFUSION SITE NECROSIS [None]
  - VIRAL MYOCARDITIS [None]
